FAERS Safety Report 10203485 (Version 5)
Quarter: 2017Q2

REPORT INFORMATION
  Report Type: Spontaneous
  Country: CA (occurrence: CA)
  Receive Date: 20140529
  Receipt Date: 20170424
  Transmission Date: 20170829
  Serious: Yes (Life-Threatening, Hospitalization)
  Sender: FDA-Public Use
  Company Number: CA-ROCHE-1409356

PATIENT
  Age: 47 Year
  Sex: Male

DRUGS (5)
  1. PREDNISONE. [Concomitant]
     Active Substance: PREDNISONE
     Dosage: DOSE INCREASED
     Route: 065
     Dates: start: 20140504, end: 20140523
  2. XOLAIR [Suspect]
     Active Substance: OMALIZUMAB
     Indication: ASTHMA
     Route: 058
     Dates: start: 20051017, end: 20060313
  3. PREDNISONE. [Concomitant]
     Active Substance: PREDNISONE
     Indication: PRODUCT USED FOR UNKNOWN INDICATION
     Dosage: 25 MG, QD
     Route: 065
  4. XOLAIR [Suspect]
     Active Substance: OMALIZUMAB
     Dosage: UKN
     Route: 058
     Dates: start: 20120202, end: 20120202
  5. XOLAIR [Suspect]
     Active Substance: OMALIZUMAB
     Route: 058
     Dates: start: 20140726

REACTIONS (8)
  - Bronchospasm [Unknown]
  - Dyspnoea [Unknown]
  - Apparent death [Unknown]
  - Asthma exercise induced [Unknown]
  - Viral upper respiratory tract infection [Unknown]
  - Asthma [Recovering/Resolving]
  - Cyanosis [Unknown]
  - Malaise [Unknown]

NARRATIVE: CASE EVENT DATE: 201304
